FAERS Safety Report 10169339 (Version 2)
Quarter: 2014Q2

REPORT INFORMATION
  Report Type: Spontaneous
  Country: US (occurrence: US)
  Receive Date: 20140513
  Receipt Date: 20140612
  Transmission Date: 20141212
  Serious: No
  Sender: FDA-Public Use
  Company Number: US-PFIZER INC-2014128424

PATIENT
  Age: 80 Year
  Sex: Female

DRUGS (2)
  1. FLAGYL [Suspect]
     Indication: DIVERTICULITIS
     Dosage: 250 (UNITS UNKNOWN) FOUR TIME A DAY
     Route: 048
     Dates: start: 20100127, end: 20100205
  2. CIPRO [Suspect]
     Indication: DIVERTICULITIS
     Dosage: 500 (UNITS UNKNOWN) TWICE DAILY
     Route: 048
     Dates: start: 20100127, end: 20100205

REACTIONS (2)
  - Urticaria [Recovered/Resolved]
  - Swelling face [Recovered/Resolved]
